FAERS Safety Report 13997143 (Version 1)
Quarter: 2017Q3

REPORT INFORMATION
  Report Type: Spontaneous
  Country: US (occurrence: US)
  Receive Date: 20170921
  Receipt Date: 20170921
  Transmission Date: 20171128
  Serious: Yes (Other)
  Sender: FDA-Public Use
  Company Number: US-PFIZER INC-2017404969

PATIENT
  Sex: Female

DRUGS (1)
  1. GABAPENTIN. [Suspect]
     Active Substance: GABAPENTIN
     Indication: PAIN
     Dosage: 800 MG, UNK

REACTIONS (5)
  - Somnolence [Unknown]
  - Dizziness [Unknown]
  - Drug ineffective for unapproved indication [Unknown]
  - Mental impairment [Unknown]
  - Impaired driving ability [Unknown]
